FAERS Safety Report 6292455-5 (Version None)
Quarter: 2009Q3

REPORT INFORMATION
  Report Type: 
  Country: None (occurrence: None)
  Receive Date: 20090731
  Receipt Date: 20090721
  Transmission Date: 20100115
  Serious: Yes (Life-Threatening, Hospitalization, Other)
  Sender: FDA-Public Use
  Company Number: LB-PFIZER INC-2009245228

PATIENT
  Age: 3 Month

DRUGS (2)
  1. ZITHROMAX [Suspect]
     Indication: PYREXIA
     Dosage: 80 MG, 1X/DAY
     Route: 048
     Dates: start: 20090719, end: 20090719
  2. PARACETAMOL [Concomitant]
     Indication: PYREXIA
     Dosage: UNK
     Route: 048
     Dates: start: 20090719

REACTIONS (5)
  - ANAPHYLACTIC SHOCK [None]
  - CHILLS [None]
  - DYSPNOEA [None]
  - LOSS OF CONSCIOUSNESS [None]
  - PALLOR [None]
